FAERS Safety Report 7495383-2 (Version None)
Quarter: 2011Q2

REPORT INFORMATION
  Report Type: 
  Country: None (occurrence: None)
  Receive Date: 20110523
  Receipt Date: 20110518
  Transmission Date: 20111010
  Serious: Yes (Other)
  Sender: FDA-Public Use
  Company Number: US-ELI_LILLY_AND_COMPANY-US201007007854

PATIENT
  Sex: Female
  Weight: 121.54 kg

DRUGS (31)
  1. BYETTA [Suspect]
     Dosage: 5 UG, BID
     Route: 058
     Dates: start: 20070118
  2. COREG [Concomitant]
     Dosage: 25 MG, BID
  3. MULTI-VITAMIN [Concomitant]
  4. ALPHAGAN [Concomitant]
  5. GLUCOSAMINE CHONDROITIN [Concomitant]
     Dosage: UNK, PRN
  6. TORSEMIDE [Concomitant]
     Dosage: 20 MG, BID
  7. THYROID TAB [Concomitant]
     Dosage: 20 MG, QD
  8. ASPIRIN [Concomitant]
     Dosage: 81 MG, QD
  9. AMLODIPINE [Concomitant]
     Dosage: 5 MG, QD
  10. METFORMIN [Concomitant]
     Dosage: 500 MG, BID
  11. SYNTHROID [Concomitant]
     Dosage: 15 MG, QD
  12. HYDRALAZINE HCL [Concomitant]
     Dosage: 50 MG, BID
  13. K-DUR [Concomitant]
     Dosage: 10 MEQ, QD
  14. GLYBURIDE [Concomitant]
     Dosage: 5 MG, QD
  15. BYETTA [Suspect]
     Dosage: 10 UG, BID
  16. METFORMIN [Concomitant]
     Dosage: 1000 MG, BID
  17. ALDACTONE [Concomitant]
     Dosage: 25 MG, QD
  18. ACTOS [Concomitant]
     Dosage: 45 MG, EACH MORNING
  19. SIMVASTATIN [Concomitant]
  20. ISORDIL [Concomitant]
     Dosage: 30 MG, BID
  21. LUMIGAN [Concomitant]
  22. ARANESP [Concomitant]
  23. TIMOLOL MALEATE [Concomitant]
  24. METOLAZONE [Concomitant]
     Dosage: 10 MG, BID
  25. CLONIDINE [Concomitant]
     Dosage: 0.2 MG, TID
  26. DIOVAN [Concomitant]
     Dosage: UNK UNK, QD
  27. LASIX [Concomitant]
     Dosage: 40 MG, QD
  28. TEKTURNA [Concomitant]
  29. FERROUS SULFATE TAB [Concomitant]
     Dosage: 325 MG, QD
  30. LIPITOR [Concomitant]
     Dosage: UNK, QD
  31. GLIPIZIDE [Concomitant]

REACTIONS (2)
  - RENAL FAILURE [None]
  - PANCREATITIS [None]
